FAERS Safety Report 13227717 (Version 1)
Quarter: 2017Q1

REPORT INFORMATION
  Report Type: Report from Study
  Country: US (occurrence: US)
  Receive Date: 20170213
  Receipt Date: 20170213
  Transmission Date: 20170428
  Serious: Yes (Hospitalization)
  Sender: FDA-Public Use
  Company Number: PHHO2017US001816

PATIENT
  Sex: Male
  Weight: 70.7 kg

DRUGS (5)
  1. BLINDED PACLITAXEL [Suspect]
     Active Substance: PACLITAXEL
     Indication: THYROID CANCER
     Dosage: CODE NOT BROKEN
     Route: 048
     Dates: start: 20151106, end: 20160118
  2. COMPARATOR PACLITAXEL [Suspect]
     Active Substance: PACLITAXEL
     Indication: THYROID CANCER
     Dosage: 80 MG/M2, OVER 1 HOUR QWEEK FOR 2-3 WEEKS
     Route: 042
     Dates: start: 20151106
  3. COMPARATOR PACLITAXEL [Suspect]
     Active Substance: PACLITAXEL
     Dosage: 50 MG/M2, OVER 1 HOUR QWEEK FOR 6-7 WEEKS
     Route: 042
     Dates: end: 20160113
  4. BLINDED NO TREATMENT RECEIVED [Suspect]
     Active Substance: INVESTIGATIONAL PRODUCT
     Indication: THYROID CANCER
     Dosage: CODE NOT BROKEN
     Route: 048
     Dates: start: 20151106, end: 20160118
  5. BLINDED PAZOPANIB [Suspect]
     Active Substance: PAZOPANIB
     Indication: THYROID CANCER
     Dosage: CODE NOT BROKEN
     Route: 048
     Dates: start: 20151106, end: 20160118

REACTIONS (2)
  - Aspiration [Recovering/Resolving]
  - Vomiting [Recovering/Resolving]

NARRATIVE: CASE EVENT DATE: 20160111
